FAERS Safety Report 9780493 (Version 1)
Quarter: 2013Q4

REPORT INFORMATION
  Report Type: Spontaneous
  Country: US (occurrence: US)
  Receive Date: 20131224
  Receipt Date: 20131224
  Transmission Date: 20140711
  Serious: No
  Sender: FDA-Public Use
  Company Number: US-009507513-1312USA008443

PATIENT
  Sex: Female

DRUGS (2)
  1. REMERON [Suspect]
     Indication: DEPRESSION
     Route: 048
  2. MIRTAZAPINE [Suspect]

REACTIONS (2)
  - Product taste abnormal [Unknown]
  - Drug ineffective [Not Recovered/Not Resolved]
